FAERS Safety Report 6395709-7 (Version None)
Quarter: 2009Q4

REPORT INFORMATION
  Report Type: 
  Country: None (occurrence: None)
  Receive Date: 20091009
  Receipt Date: 20091005
  Transmission Date: 20100525
  Serious: Yes (Hospitalization)
  Sender: FDA-Public Use
  Company Number: DE-AMGEN-UK362485

PATIENT
  Age: 52 Year
  Sex: Male
  Weight: 77 kg

DRUGS (4)
  1. MIMPARA [Suspect]
     Indication: HYPERPARATHYROIDISM PRIMARY
     Route: 048
     Dates: end: 20090731
  2. DIOVAN [Concomitant]
     Route: 048
  3. ALLOPURINOL [Concomitant]
     Route: 048
  4. TORSEMIDE [Concomitant]
     Route: 048

REACTIONS (2)
  - BLOOD PARATHYROID HORMONE INCREASED [None]
  - HYPERCALCAEMIA [None]
